FAERS Safety Report 10184852 (Version 1)
Quarter: 2014Q2

REPORT INFORMATION
  Report Type: Spontaneous
  Country: IN (occurrence: IN)
  Receive Date: 20140521
  Receipt Date: 20140521
  Transmission Date: 20141212
  Serious: Yes (Other)
  Sender: FDA-Public Use
  Company Number: IN-ASTRAZENECA-2014SE33507

PATIENT
  Age: 72 Year
  Sex: Male
  Weight: 80 kg

DRUGS (3)
  1. BRILINTA [Suspect]
     Indication: PERCUTANEOUS CORONARY INTERVENTION
     Route: 048
     Dates: start: 20140510, end: 20140511
  2. BRILINTA [Suspect]
     Indication: CARDIOMEGALY
     Route: 048
     Dates: start: 20140510, end: 20140511
  3. ECOSPRIN [Suspect]

REACTIONS (2)
  - Platelet count decreased [Unknown]
  - Haematoma [Unknown]
